FAERS Safety Report 8541681-0 (Version None)
Quarter: 2012Q3

REPORT INFORMATION
  Report Type: 
  Country: None (occurrence: None)
  Receive Date: 20120726
  Receipt Date: 20120719
  Transmission Date: 20120928
  Serious: Yes (Other)
  Sender: FDA-Public Use
  Company Number: CHPA2012US015530

PATIENT
  Age: 51 Year
  Sex: Female

DRUGS (5)
  1. TYLENOL [Concomitant]
  2. AMBIEN [Concomitant]
  3. VOLTAREN [Suspect]
     Indication: INTERVERTEBRAL DISC DEGENERATION
     Dosage: ^NICKEL OR QUARTER SIZE^, QD, 3-4 TIMES A WEEK
     Route: 061
     Dates: start: 20090101, end: 20120101
  4. IBUPROFEN [Concomitant]
  5. NAPROXEN (ALEVE) [Concomitant]

REACTIONS (7)
  - HEADACHE [None]
  - THERAPEUTIC RESPONSE UNEXPECTED [None]
  - NEUROPATHY PERIPHERAL [None]
  - OFF LABEL USE [None]
  - DRUG ADMINISTERED AT INAPPROPRIATE SITE [None]
  - ASTHENIA [None]
  - MYALGIA [None]
